FAERS Safety Report 26105821 (Version 1)
Quarter: 2025Q4

REPORT INFORMATION
  Report Type: Spontaneous
  Country: US (occurrence: US)
  Receive Date: 20251201
  Receipt Date: 20251201
  Transmission Date: 20260118
  Serious: Yes (Death)
  Sender: JUBILANT
  Company Number: US-JUBILANT CADISTA PHARMACEUTICALS-2025JUB00125

PATIENT
  Age: 84 Year
  Sex: Female

DRUGS (1)
  1. ALENDRONATE [Suspect]
     Active Substance: ALENDRONATE SODIUM
     Dosage: 420 MG
     Route: 048

REACTIONS (5)
  - Escherichia bacteraemia [Fatal]
  - Intestinal pseudo-obstruction [Fatal]
  - Intestinal ischaemia [Fatal]
  - Acute kidney injury [Fatal]
  - Accidental overdose [Fatal]
